FAERS Safety Report 22341518 (Version 2)
Quarter: 2023Q2

REPORT INFORMATION
  Report Type: Spontaneous
  Country: US (occurrence: US)
  Receive Date: 20230518
  Receipt Date: 20230630
  Transmission Date: 20230721
  Serious: No
  Sender: FDA-Public Use
  Company Number: US-GALDERMA-US2023007000

PATIENT

DRUGS (3)
  1. PROACTIV MD ADAPALENE ACNE TREATMENT [Suspect]
     Active Substance: ADAPALENE
     Indication: Product used for unknown indication
     Dosage: 1 DOSAGE FORM
     Route: 061
     Dates: start: 20230427, end: 202304
  2. Proactiv MD Ultra Gentle Cleanser [Concomitant]
     Indication: Product used for unknown indication
     Dosage: 1 DOSAGE FORM
     Route: 061
     Dates: start: 20230425, end: 202304
  3. Proactiv MD Ultra Hydrating Moisturizer [Concomitant]
     Indication: Product used for unknown indication
     Dosage: 1 DOSAGE FORM
     Route: 061
     Dates: start: 20230425, end: 202304

REACTIONS (4)
  - Dry skin [Unknown]
  - Skin exfoliation [Unknown]
  - Skin burning sensation [Unknown]
  - Photosensitivity reaction [Unknown]

NARRATIVE: CASE EVENT DATE: 20230401
